FAERS Safety Report 18662318 (Version 1)
Quarter: 2020Q4

REPORT INFORMATION
  Report Type: Spontaneous
  Country: US (occurrence: US)
  Receive Date: 20201224
  Receipt Date: 20201224
  Transmission Date: 20210114
  Serious: No
  Sender: FDA-Public Use
  Company Number: US-ALXN-A202019112

PATIENT
  Sex: Female

DRUGS (1)
  1. SOLIRIS [Suspect]
     Active Substance: ECULIZUMAB
     Indication: NEUROMYELITIS OPTICA SPECTRUM DISORDER
     Dosage: 900 MG, UNK
     Route: 065

REACTIONS (5)
  - Dizziness [Unknown]
  - Chest discomfort [Unknown]
  - Abdominal discomfort [Unknown]
  - Nausea [Unknown]
  - Feeling hot [Unknown]
